FAERS Safety Report 5123143-6 (Version None)
Quarter: 2006Q4

REPORT INFORMATION
  Report Type: 
  Country: None (occurrence: None)
  Receive Date: 20061009
  Receipt Date: 20060926
  Transmission Date: 20070319
  Serious: Yes (Death, Life-Threatening, Hospitalization, Other)
  Sender: FDA-Public Use
  Company Number: NSADSS2002004250

PATIENT
  Sex: Male

DRUGS (14)
  1. REMICADE [Suspect]
     Route: 041
     Dates: start: 20010714
  2. REMICADE [Suspect]
     Route: 041
     Dates: start: 20010714
  3. REMICADE [Suspect]
     Indication: PSORIATIC ARTHROPATHY
     Route: 041
     Dates: start: 20010714
  4. METHOTREXATE [Concomitant]
     Route: 065
  5. METHOTREXATE [Concomitant]
     Route: 065
  6. METHOTREXATE [Concomitant]
     Indication: PSORIATIC ARTHROPATHY
     Route: 065
  7. FOLIC ACID [Concomitant]
     Route: 065
  8. MEDROL [Concomitant]
     Route: 065
  9. MEDROL [Concomitant]
     Route: 065
  10. LASIX [Concomitant]
     Route: 065
  11. LOPRESSOR [Concomitant]
     Route: 065
  12. ASPIRIN [Concomitant]
     Route: 065
  13. SIMVASTATIN [Concomitant]
     Route: 065
  14. SULFASALAZINE [Concomitant]

REACTIONS (12)
  - ANGINA PECTORIS [None]
  - ARTERIAL HAEMORRHAGE [None]
  - ARTERIAL RUPTURE [None]
  - BRONCHOPNEUMONIA [None]
  - CORONARY ARTERY DISEASE [None]
  - DYSPNOEA [None]
  - DYSPNOEA EXERTIONAL [None]
  - HAEMATOMA [None]
  - MYOCARDIAL ISCHAEMIA [None]
  - OEDEMA PERIPHERAL [None]
  - RESPIRATORY FAILURE [None]
  - SEPTIC SHOCK [None]
